FAERS Safety Report 23692669 (Version 1)
Quarter: 2024Q2

REPORT INFORMATION
  Report Type: Spontaneous
  Country: US (occurrence: US)
  Receive Date: 20240401
  Receipt Date: 20240401
  Transmission Date: 20240716
  Serious: No
  Sender: FDA-Public Use
  Company Number: US-BIOGEN-2023BI01236756

PATIENT
  Sex: Female

DRUGS (3)
  1. VUMERITY [Suspect]
     Active Substance: DIROXIMEL FUMARATE
     Indication: Multiple sclerosis
     Dosage: TAKE 1 CAPSULE (231MG) BY MOUTH TWICE A DAY FOR 7 DAYS, THEN TAKE 2 CAPSULES (462MG) BY MOUTH TWI...
     Route: 050
  2. VUMERITY [Suspect]
     Active Substance: DIROXIMEL FUMARATE
     Dosage: TAKE 1 CAPSULE (231MG) BY MOUTH TWICE A DAY FOR 7 DAYS, THEN TAKE 2 CAPSULES (462MG) BY MOUTH TWI...
     Route: 050
  3. DIVALPROEX SODIUM DR [Concomitant]
     Active Substance: DIVALPROEX SODIUM
     Route: 050

REACTIONS (3)
  - Product dose omission in error [Unknown]
  - Diarrhoea [Unknown]
  - Flushing [Unknown]
